FAERS Safety Report 14672026 (Version 2)
Quarter: 2018Q4

REPORT INFORMATION
  Report Type: Spontaneous
  Country: FR (occurrence: FR)
  Receive Date: 20180323
  Receipt Date: 20181024
  Transmission Date: 20190204
  Serious: No
  Sender: FDA-Public Use
  Company Number: FR-MERCK KGAA-2044377

PATIENT
  Age: 47 Year
  Sex: Male

DRUGS (1)
  1. EUTHYROX [Suspect]
     Active Substance: LEVOTHYROXINE SODIUM
     Indication: PRODUCT USED FOR UNKNOWN INDICATION
     Dates: end: 201710

REACTIONS (16)
  - Myalgia [None]
  - Irritability [None]
  - Aggression [None]
  - Blood thyroid stimulating hormone increased [None]
  - Weight increased [None]
  - Amnesia [None]
  - Somnolence [None]
  - Dry mouth [None]
  - Mental fatigue [None]
  - Communication disorder [None]
  - Headache [None]
  - Apathy [None]
  - Palpitations [None]
  - Disturbance in attention [None]
  - Loss of libido [None]
  - Fatigue [None]

NARRATIVE: CASE EVENT DATE: 20171013
